FAERS Safety Report 5395149-3 (Version None)
Quarter: 2007Q3

REPORT INFORMATION
  Report Type: 
  Country: None (occurrence: None)
  Receive Date: 20070724
  Receipt Date: 20070716
  Transmission Date: 20080115
  Serious: Yes (Hospitalization)
  Sender: FDA-Public Use
  Company Number: BR-AVENTIS-200716605GDDC

PATIENT
  Sex: Female
  Weight: 65 kg

DRUGS (3)
  1. LANTUS [Suspect]
     Route: 058
     Dates: start: 20040101, end: 20070601
  2. LANTUS [Suspect]
     Route: 058
     Dates: start: 20070615
  3. OPTIPEN (INSULIN PUMP) [Suspect]
     Dates: start: 20040101

REACTIONS (4)
  - HOSPITALISATION [None]
  - HYPERGLYCAEMIA [None]
  - JOINT SWELLING [None]
  - MEDICATION ERROR [None]
